FAERS Safety Report 13146037 (Version 4)
Quarter: 2018Q1

REPORT INFORMATION
  Report Type: Spontaneous
  Country: US (occurrence: US)
  Receive Date: 20170124
  Receipt Date: 20180123
  Transmission Date: 20180508
  Serious: No
  Sender: FDA-Public Use
  Company Number: US-AMGEN-USASP2017007741

PATIENT
  Age: 63 Year
  Sex: Female
  Weight: 77.55 kg

DRUGS (1)
  1. REPATHA [Suspect]
     Active Substance: EVOLOCUMAB
     Indication: HYPERCHOLESTEROLAEMIA
     Dosage: 140 MG, Q2WK
     Route: 065
     Dates: start: 20160421

REACTIONS (3)
  - Swelling face [Recovered/Resolved]
  - Skin discolouration [Recovered/Resolved]
  - Eye pruritus [Recovered/Resolved]
